FAERS Safety Report 6526254-3 (Version None)
Quarter: 2009Q4

REPORT INFORMATION
  Report Type: 
  Country: None (occurrence: None)
  Receive Date: 20091228
  Receipt Date: 20091209
  Transmission Date: 20100525
  Serious: Yes (Other)
  Sender: FDA-Public Use
  Company Number: 003344

PATIENT
  Sex: Male

DRUGS (1)
  1. XYZAL [Suspect]

REACTIONS (1)
  - THROMBOSIS [None]
